FAERS Safety Report 16097003 (Version 1)
Quarter: 2019Q1

REPORT INFORMATION
  Report Type: Report from Study
  Country: GB (occurrence: GB)
  Receive Date: 20190320
  Receipt Date: 20190320
  Transmission Date: 20190418
  Serious: Yes (Other)
  Sender: FDA-Public Use
  Company Number: GB-MYLANLABS-2019M1025575

PATIENT
  Age: 25 Year
  Sex: Female
  Weight: 51.1 kg

DRUGS (3)
  1. TOBI PODHALER [Suspect]
     Active Substance: TOBRAMYCIN
     Indication: CYSTIC FIBROSIS
     Dosage: 112 MG, BID (28 MG HARD CAPSULES)
     Route: 055
     Dates: start: 201604
  2. PROMIXIN                           /00013206/ [Concomitant]
     Active Substance: COLISTIMETHATE SODIUM
     Indication: CYSTIC FIBROSIS
     Dosage: 1 ML, BID
     Route: 055
     Dates: start: 201604
  3. BRONCHITOL [Concomitant]
     Indication: CYSTIC FIBROSIS
     Dosage: 400 MG, BID
     Route: 055
     Dates: start: 201706

REACTIONS (1)
  - Lower respiratory tract infection [Unknown]
